FAERS Safety Report 7384369-4 (Version None)
Quarter: 2011Q1

REPORT INFORMATION
  Report Type: 
  Country: None (occurrence: None)
  Receive Date: 20110330
  Receipt Date: 20110318
  Transmission Date: 20110831
  Serious: No
  Sender: FDA-Public Use
  Company Number: US-BAYER-2010-009097

PATIENT
  Sex: Female
  Weight: 54 kg

DRUGS (12)
  1. CLARINEX [Concomitant]
     Dosage: 5 MG, UNK
     Dates: start: 20070620
  2. YASMIN [Suspect]
     Indication: PRODUCT USED FOR UNKNOWN INDICATION
  3. BROMATANE DX [Concomitant]
     Dosage: UNK
     Dates: start: 20070613
  4. SULFAMETHOXAZOLE [Concomitant]
     Dosage: UNK
     Dates: start: 20070728
  5. NAPROXEN SODIUM [Concomitant]
     Dosage: UNK
     Dates: start: 20070628
  6. NAPROXEN SODIUM [Concomitant]
     Dosage: UNK
     Dates: start: 20070727
  7. AMOXICILLIN [Concomitant]
     Dosage: 500 MG, UNK
     Dates: start: 20070613
  8. CYPROHEPTADINE HCL [Concomitant]
     Dosage: 4 MG, UNK
     Dates: start: 20070616
  9. YAZ [Suspect]
     Indication: PRODUCT USED FOR UNKNOWN INDICATION
  10. CIPROFLOXACIN [Concomitant]
     Dosage: 500 MG, UNK
     Dates: start: 20070417
  11. NAPROXEN SODIUM [Concomitant]
     Dosage: UNK
     Dates: start: 20070328
  12. NAPROXEN SODIUM [Concomitant]
     Dosage: 550 MG, UNK
     Dates: start: 20061215

REACTIONS (3)
  - PAIN [None]
  - GALLBLADDER DISORDER [None]
  - INJURY [None]
